FAERS Safety Report 16370378 (Version 1)
Quarter: 2019Q2

REPORT INFORMATION
  Report Type: Spontaneous
  Country: US (occurrence: US)
  Receive Date: 20190530
  Receipt Date: 20190530
  Transmission Date: 20190711
  Serious: Yes (Life-Threatening, Hospitalization, Other)
  Sender: FDA-Public Use
  Company Number: US-ZYDUS-037331

PATIENT
  Age: 37 Year
  Sex: Female

DRUGS (1)
  1. BENZONATATE. [Suspect]
     Active Substance: BENZONATATE
     Indication: PRODUCT USED FOR UNKNOWN INDICATION
     Dosage: LESS THAN 30 PILLS OF BENZONATATE 200MG CAPSULES
     Route: 048

REACTIONS (8)
  - Seizure [Unknown]
  - Cardiac arrest [Recovered/Resolved]
  - Hypotension [Recovered/Resolved]
  - Respiratory acidosis [Unknown]
  - Bradycardia [Recovered/Resolved]
  - Unresponsive to stimuli [Unknown]
  - Overdose [Unknown]
  - Metabolic acidosis [Unknown]
